FAERS Safety Report 19030588 (Version 1)
Quarter: 2021Q1

REPORT INFORMATION
  Report Type: Spontaneous
  Country: US (occurrence: US)
  Receive Date: 20210319
  Receipt Date: 20210319
  Transmission Date: 20210420
  Serious: Yes (Hospitalization, Other)
  Sender: FDA-Public Use
  Company Number: US-AMGEN-USASP2021041961

PATIENT
  Age: 69 Year
  Sex: Male

DRUGS (5)
  1. MELPHALAN. [Concomitant]
     Active Substance: MELPHALAN
     Dosage: UNK
  2. CARFILZOMIB [Suspect]
     Active Substance: CARFILZOMIB
     Indication: PLASMA CELL MYELOMA
     Dosage: UNK
     Route: 065
  3. DEXAMETHASONE. [Suspect]
     Active Substance: DEXAMETHASONE
     Indication: PLASMA CELL MYELOMA
     Dosage: UNK
     Route: 065
  4. CYCLOPHOSPHAMIDE. [Suspect]
     Active Substance: CYCLOPHOSPHAMIDE
     Indication: PLASMA CELL MYELOMA
     Dosage: UNK
     Route: 065
  5. BUSULFAN. [Concomitant]
     Active Substance: BUSULFAN
     Dosage: UNK

REACTIONS (2)
  - Plasma cell myeloma recurrent [Unknown]
  - Off label use [Unknown]
